FAERS Safety Report 5678107-0 (Version None)
Quarter: 2008Q1

REPORT INFORMATION
  Report Type: 
  Country: None (occurrence: None)
  Receive Date: 20080324
  Receipt Date: 20080324
  Transmission Date: 20080703
  Serious: Yes (Hospitalization)
  Sender: FDA-Public Use
  Company Number: None

PATIENT
  Age: 13 Year
  Sex: Male
  Weight: 40.8237 kg

DRUGS (4)
  1. PROZAC [Suspect]
     Indication: CONFUSIONAL STATE
     Dosage: UP TO 60 MG. DAILY PO
     Route: 048
     Dates: start: 19960215, end: 19960909
  2. PROZAC [Suspect]
     Indication: VISUAL DISTURBANCE
     Dosage: UP TO 60 MG. DAILY PO
     Route: 048
     Dates: start: 19960215, end: 19960909
  3. TEGRETOL [Concomitant]
  4. VALIUM [Concomitant]

REACTIONS (7)
  - ANXIETY [None]
  - CONFUSIONAL STATE [None]
  - DEREALISATION [None]
  - DIZZINESS [None]
  - DYSPEPSIA [None]
  - HEADACHE [None]
  - ILL-DEFINED DISORDER [None]
